FAERS Safety Report 25913176 (Version 1)
Quarter: 2025Q4

REPORT INFORMATION
  Report Type: Spontaneous
  Country: EU (occurrence: EU)
  Receive Date: 20251013
  Receipt Date: 20251013
  Transmission Date: 20260118
  Serious: Yes (Other)
  Sender: CHEPLAPHARM
  Company Number: None

PATIENT
  Age: 34 Year
  Sex: Male

DRUGS (9)
  1. BROMAZEPAM [Suspect]
     Active Substance: BROMAZEPAM
  2. CLONAZEPAM [Suspect]
     Active Substance: CLONAZEPAM
  3. CANNABIS SATIVA SUBSP. INDICA TOP [Suspect]
     Active Substance: CANNABIS SATIVA SUBSP. INDICA TOP
  4. COCAINE [Suspect]
     Active Substance: COCAINE
  5. COCAETHYLENE [Suspect]
     Active Substance: COCAETHYLENE
  6. LEVAMISOLE [Suspect]
     Active Substance: LEVAMISOLE
  7. LYRICA [Suspect]
     Active Substance: PREGABALIN
  8. NORDAZEPAM [Suspect]
     Active Substance: NORDAZEPAM
  9. COCAINE [Suspect]
     Active Substance: COCAINE

REACTIONS (5)
  - Altered state of consciousness [Recovered/Resolved]
  - Mydriasis [Recovered/Resolved]
  - Substance use disorder [Unknown]
  - Drug use disorder [Unknown]
  - Toxicity to various agents [Unknown]

NARRATIVE: CASE EVENT DATE: 20250615
